FAERS Safety Report 7970152 (Version 3)
Quarter: 2013Q1

REPORT INFORMATION
  Report Type: Spontaneous
  Country: US (occurrence: US)
  Receive Date: 20110601
  Receipt Date: 20130212
  Transmission Date: 20140127
  Serious: Yes (Hospitalization, Other)
  Sender: FDA-Public Use
  Company Number: US-US-EMD SERONO, INC.-7062021

PATIENT
  Age: 54 None
  Sex: Female

DRUGS (4)
  1. REBIF [Suspect]
     Indication: PRODUCT USED FOR UNKNOWN INDICATION
     Route: 058
     Dates: start: 20060710
  2. METHOTREXATE [Concomitant]
     Indication: RHEUMATOID ARTHRITIS
  3. AMPYRA [Concomitant]
     Indication: PRODUCT USED FOR UNKNOWN INDICATION
  4. TYLENOL [Concomitant]
     Indication: PREMEDICATION

REACTIONS (14)
  - Bacterial infection [Unknown]
  - Pneumonia aspiration [Unknown]
  - Hypertension [Unknown]
  - Fall [Unknown]
  - Joint dislocation [Unknown]
  - Abasia [Not Recovered/Not Resolved]
  - Dysstasia [Unknown]
  - Reflux gastritis [Unknown]
  - Fracture [Unknown]
  - White blood cell count increased [Recovered/Resolved]
  - Pain in extremity [Not Recovered/Not Resolved]
  - Chills [Unknown]
  - Depression [Recovering/Resolving]
  - Pyrexia [Not Recovered/Not Resolved]
